FAERS Safety Report 9238016 (Version 1)
Quarter: 2013Q2

REPORT INFORMATION
  Report Type: Spontaneous
  Country: GB (occurrence: GB)
  Receive Date: 20130418
  Receipt Date: 20130418
  Transmission Date: 20140414
  Serious: Yes (Death, Hospitalization)
  Sender: FDA-Public Use
  Company Number: GB-TARO PHARMACEUTICALS U.S.A., INC-2013SUN00475

PATIENT
  Age: 74 Year
  Sex: Female

DRUGS (1)
  1. WARFARIN [Suspect]
     Indication: ANTICOAGULANT THERAPY
     Route: 065

REACTIONS (9)
  - Large intestinal obstruction [Unknown]
  - Large intestinal ulcer [Unknown]
  - Abdominal pain [Unknown]
  - Abdominal distension [Unknown]
  - Abdominal tenderness [Unknown]
  - Abdominal discomfort [Unknown]
  - Intestinal haematoma [Unknown]
  - International normalised ratio increased [Unknown]
  - Haemoglobin abnormal [Unknown]
